FAERS Safety Report 8817776 (Version 1)
Quarter: 2012Q4

REPORT INFORMATION
  Report Type: Report from Study
  Country: JP (occurrence: JP)
  Receive Date: 20121001
  Receipt Date: 20121001
  Transmission Date: 20130627
  Serious: Yes (Other)
  Sender: FDA-Public Use
  Company Number: PHHY2012JP084515

PATIENT
  Age: 83 Year
  Sex: Female
  Weight: 43.4 kg

DRUGS (5)
  1. AMN107 [Suspect]
     Indication: CHRONIC MYELOID LEUKAEMIA
     Dosage: 400 mg, daily
     Route: 048
     Dates: start: 20100422
  2. SUNRYTHM [Concomitant]
     Indication: ATRIAL FIBRILLATION
  3. ITOROL [Concomitant]
     Indication: CARDIAC FAILURE
  4. ARICEPT [Concomitant]
     Indication: DEMENTIA ALZHEIMER^S TYPE
  5. TAKEPRON [Concomitant]
     Indication: PROPHYLAXIS

REACTIONS (1)
  - Lipase increased [Recovered/Resolved]
